FAERS Safety Report 16202904 (Version 1)
Quarter: 2019Q2

REPORT INFORMATION
  Report Type: Spontaneous
  Country: PT (occurrence: FR)
  Receive Date: 20190416
  Receipt Date: 20190416
  Transmission Date: 20190711
  Serious: Yes (Life-Threatening, Other)
  Sender: FDA-Public Use
  Company Number: PT-SUNOVION-2019SUN001542

PATIENT

DRUGS (4)
  1. KEPPRA [Suspect]
     Active Substance: LEVETIRACETAM
     Indication: EPILEPSY
     Dosage: 1000 MG, 2X / DAY
     Route: 048
     Dates: start: 2017, end: 201812
  2. KEPPRA [Suspect]
     Active Substance: LEVETIRACETAM
     Dosage: 1200 MG, DAILY
     Route: 048
     Dates: start: 201812
  3. KARDEGIC [Concomitant]
     Active Substance: ASPIRIN DL-LYSINE
     Indication: CEREBROVASCULAR ACCIDENT
     Dosage: 75 MG, 1X / DAY
     Route: 048
     Dates: start: 2017
  4. ZEBINIX [Suspect]
     Active Substance: ESLICARBAZEPINE ACETATE
     Indication: EPILEPSY
     Dosage: 800 MG, 1X / DAY
     Route: 048
     Dates: start: 20181112

REACTIONS (3)
  - Drug ineffective [Unknown]
  - Off label use [Unknown]
  - Status epilepticus [Recovered/Resolved]

NARRATIVE: CASE EVENT DATE: 20181213
